FAERS Safety Report 10576067 (Version 1)
Quarter: 2014Q4

REPORT INFORMATION
  Report Type: Spontaneous
  Country: US (occurrence: US)
  Receive Date: 20141111
  Receipt Date: 20141111
  Transmission Date: 20150529
  Serious: No
  Sender: FDA-Public Use
  Company Number: US-BAYER-2014-160779

PATIENT
  Sex: Female

DRUGS (2)
  1. MIRENA [Suspect]
     Active Substance: LEVONORGESTREL
     Dosage: 20 MCG/24HR, CONT
     Route: 015
     Dates: start: 2012, end: 201408
  2. SKYLA [Suspect]
     Active Substance: LEVONORGESTREL
     Dosage: 14 MCG/24HR, CONT
     Route: 015
     Dates: start: 20141023, end: 20141028

REACTIONS (11)
  - Device use error [None]
  - Device expulsion [None]
  - Off label use [None]
  - Irritable bowel syndrome [None]
  - Vaginal discharge [Not Recovered/Not Resolved]
  - Infection [None]
  - Intentional medical device removal by patient [None]
  - Off label use [None]
  - Abdominal pain lower [None]
  - Medical device discomfort [Recovering/Resolving]
  - Uterine tenderness [Recovering/Resolving]

NARRATIVE: CASE EVENT DATE: 201408
